FAERS Safety Report 5674565-6 (Version None)
Quarter: 2008Q2

REPORT INFORMATION
  Report Type: 
  Country: None (occurrence: None)
  Receive Date: 20080303
  Receipt Date: 20070312
  Transmission Date: 20081010
  Serious: Yes (Other)
  Sender: FDA-Public Use
  Company Number: MK-6031297

PATIENT
  Age: 5 Year
  Sex: Female
  Weight: 15.7 kg

DRUGS (7)
  1. AMNESTEEM [Suspect]
     Indication: NEUROBLASTOMA
     Dosage: 40 MG;TWICE A DAY;ORAL
     Route: 048
     Dates: start: 20061101, end: 20070101
  2. AMNESTEEM [Suspect]
     Indication: NEUROBLASTOMA
     Dosage: 30 MG;DAILY;ORAL; 10 MG; TWICE A DAY;ORAL
     Route: 048
     Dates: start: 20061101, end: 20061203
  3. AMNESTEEM [Suspect]
     Indication: NEUROBLASTOMA
     Dosage: 30 MG;DAILY;ORAL; 10 MG; TWICE A DAY;ORAL
     Route: 048
     Dates: start: 20061204, end: 20070104
  4. MORPHINE [Concomitant]
  5. IBUPROFEN [Concomitant]
  6. ONDANSETRON [Concomitant]
  7. MIRALAX [Concomitant]

REACTIONS (2)
  - BLOOD TRIGLYCERIDES INCREASED [None]
  - DRUG INEFFECTIVE FOR UNAPPROVED INDICATION [None]
